FAERS Safety Report 5020550-7 (Version None)
Quarter: 2006Q2

REPORT INFORMATION
  Report Type: 
  Country: None (occurrence: None)
  Receive Date: 20060606
  Receipt Date: 20060606
  Transmission Date: 20061013
  Serious: Yes (Other)
  Sender: FDA-Public Use
  Company Number: None

PATIENT
  Age: 47 Year
  Sex: Female
  Weight: 51.2565 kg

DRUGS (1)
  1. ZOSYN [Suspect]
     Dosage: 2.25GM Q6H
     Dates: start: 20050401, end: 20050407

REACTIONS (1)
  - THROMBOCYTOPENIA [None]
